FAERS Safety Report 5408928-0 (Version None)
Quarter: 2007Q3

REPORT INFORMATION
  Report Type: 
  Country: None (occurrence: None)
  Receive Date: 20070808
  Receipt Date: 20070731
  Transmission Date: 20080115
  Serious: Yes (Other)
  Sender: FDA-Public Use
  Company Number: FR-PFIZER INC-2007063777

PATIENT
  Sex: Female

DRUGS (4)
  1. AROMASIN [Suspect]
     Indication: BREAST CANCER
  2. CONDROSULF [Concomitant]
  3. CLONAZEPAM [Concomitant]
  4. METEOXANE [Concomitant]

REACTIONS (2)
  - CARPAL TUNNEL SYNDROME [None]
  - PARALYSIS [None]
